FAERS Safety Report 8580343-0 (Version None)
Quarter: 2012Q3

REPORT INFORMATION
  Report Type: 
  Country: None (occurrence: None)
  Receive Date: 20120808
  Receipt Date: 20111228
  Transmission Date: 20120928
  Serious: Yes (Other)
  Sender: FDA-Public Use
  Company Number: CO-PFIZER INC-2012192185

PATIENT
  Age: 75 Year
  Sex: Female

DRUGS (7)
  1. LIPITOR [Suspect]
     Dosage: 10 MG, 1X/DAY
     Route: 048
  2. LOVASTATIN [Concomitant]
     Dosage: 20 MG, 2X/DAY
     Route: 048
  3. AMLODIPINE [Concomitant]
     Dosage: 5 MG, 1X/DAY
     Route: 048
  4. FUROSEMIDE [Concomitant]
     Dosage: 40 MG, 1X/DAY
     Route: 048
  5. LOSARTAN POTASSIUM [Concomitant]
     Dosage: TWICE DAILY
     Route: 048
  6. ACETYLSALICYLIC ACID [Concomitant]
     Dosage: 100 MG, 1X/DAY
     Route: 048
  7. METOPROLOL TARTRATE [Concomitant]
     Dosage: 50 MG, 1X/DAY
     Route: 048

REACTIONS (1)
  - HYPERTENSIVE EMERGENCY [None]
